APPROVED DRUG PRODUCT: T-STAT
Active Ingredient: ERYTHROMYCIN
Strength: 2% **Federal Register determination that product was not discontinued or withdrawn for safety or effectiveness reasons**
Dosage Form/Route: SOLUTION;TOPICAL
Application: A062436 | Product #001
Applicant: WESTWOOD SQUIBB PHARMACEUTICALS INC
Approved: Mar 9, 1983 | RLD: No | RS: No | Type: DISCN